FAERS Safety Report 8013154-5 (Version None)
Quarter: 2011Q4

REPORT INFORMATION
  Report Type: 
  Country: None (occurrence: None)
  Receive Date: 20111229
  Receipt Date: 20111226
  Transmission Date: 20120403
  Serious: No
  Sender: FDA-Public Use
  Company Number: US-PFIZER INC-2011313350

PATIENT
  Sex: Female
  Weight: 42.63 kg

DRUGS (1)
  1. IBUPROFEN (ADVIL) [Suspect]
     Indication: SKELETAL INJURY
     Dosage: UNK
     Route: 048
     Dates: start: 20111225

REACTIONS (1)
  - PRURITUS [None]
